FAERS Safety Report 4472863-5 (Version None)
Quarter: 2004Q4

REPORT INFORMATION
  Report Type: 
  Country: None (occurrence: None)
  Receive Date: 20041012
  Receipt Date: 20041012
  Transmission Date: 20050328
  Serious: Yes (Death)
  Sender: FDA-Public Use
  Company Number: None

PATIENT
  Sex: Female

DRUGS (1)
  1. ISOVUE-300 [Suspect]

REACTIONS (3)
  - APNOEA [None]
  - CARDIO-RESPIRATORY ARREST [None]
  - PULSE ABSENT [None]
